FAERS Safety Report 14329065 (Version 3)
Quarter: 2018Q1

REPORT INFORMATION
  Report Type: Report from Study
  Country: US (occurrence: US)
  Receive Date: 20171227
  Receipt Date: 20180118
  Transmission Date: 20180509
  Serious: Yes (Other)
  Sender: FDA-Public Use
  Company Number: US-UCBSA-2017020749

PATIENT
  Sex: Male

DRUGS (3)
  1. LEVETIRACETAM. [Suspect]
     Active Substance: LEVETIRACETAM
     Dosage: UNK
  2. PHENOBARBITAL. [Suspect]
     Active Substance: PHENOBARBITAL
     Indication: PRODUCT USED FOR UNKNOWN INDICATION
     Dosage: UNK UNK, 2X/DAY (BID)
  3. LEVETIRACETAM. [Suspect]
     Active Substance: LEVETIRACETAM
     Indication: PRODUCT USED FOR UNKNOWN INDICATION
     Dosage: UNK

REACTIONS (19)
  - Mood swings [Recovered/Resolved]
  - Feeling abnormal [Unknown]
  - Seizure [Recovering/Resolving]
  - Dizziness [Unknown]
  - Drug dose omission [Unknown]
  - Aura [Unknown]
  - Fatigue [Unknown]
  - Visual impairment [Unknown]
  - Renal disorder [Unknown]
  - Generalised tonic-clonic seizure [Recovering/Resolving]
  - Insomnia [Unknown]
  - Anger [Recovered/Resolved]
  - Petit mal epilepsy [Unknown]
  - Somnolence [Unknown]
  - Weight decreased [Unknown]
  - Loss of personal independence in daily activities [Unknown]
  - Hepatic function abnormal [Unknown]
  - Malaise [Unknown]
  - Nausea [Unknown]
